FAERS Safety Report 8819801 (Version 4)
Quarter: 2012Q4

REPORT INFORMATION
  Report Type: 
  Country: US (occurrence: US)
  Receive Date: 20121001
  Receipt Date: 20121106
  Transmission Date: 20130627
  Serious: No
  Sender: FDA-Public Use
  Company Number: US-ASTRAZENECA-2012SE73126

PATIENT
  Age: 42 Year
  Sex: Female

DRUGS (5)
  1. PULMICORT [Suspect]
     Indication: ASTHMA
     Route: 055
  2. ADVAIR [Concomitant]
  3. FLONASE [Concomitant]
  4. SINGULAIR [Concomitant]
  5. ANTIHISTAMINES [Concomitant]

REACTIONS (7)
  - Asthma [Recovered/Resolved]
  - Nasopharyngitis [Unknown]
  - Chest discomfort [Unknown]
  - Performance status decreased [Unknown]
  - Dysphonia [Unknown]
  - Cough [Unknown]
  - Intentional drug misuse [Unknown]
